FAERS Safety Report 9150009 (Version 1)
Quarter: 2013Q1

REPORT INFORMATION
  Report Type: Spontaneous
  Country: BR (occurrence: BR)
  Receive Date: 20130308
  Receipt Date: 20130308
  Transmission Date: 20140127
  Serious: Yes (Other)
  Sender: FDA-Public Use
  Company Number: BR-PFIZER INC-2013079112

PATIENT
  Age: 54 Year
  Sex: Female

DRUGS (3)
  1. ATENOLOL [Suspect]
     Indication: ARRHYTHMIA
     Dosage: 0.5 DF, DAILY
     Route: 048
     Dates: start: 2012
  2. CRESTOR [Suspect]
     Indication: BLOOD CHOLESTEROL INCREASED
     Dosage: 5 MG, DAILY
     Route: 048
     Dates: start: 20130216
  3. METFORMIN [Concomitant]
     Indication: DIABETES MELLITUS
     Dosage: UNK
     Route: 048

REACTIONS (5)
  - Thyroid neoplasm [Unknown]
  - Blood cholesterol increased [Unknown]
  - Blood glucose increased [Not Recovered/Not Resolved]
  - Constipation [Not Recovered/Not Resolved]
  - Dizziness [Not Recovered/Not Resolved]
